FAERS Safety Report 9009446 (Version 1)
Quarter: 2013Q1

REPORT INFORMATION
  Report Type: Spontaneous
  Country: US (occurrence: US)
  Receive Date: 20130112
  Receipt Date: 20130112
  Transmission Date: 20140127
  Serious: Yes (Other)
  Sender: FDA-Public Use
  Company Number: US-009507513-1301USA001836

PATIENT
  Age: 51 Year
  Sex: Female

DRUGS (3)
  1. MONTELUKAST SODIUM [Suspect]
     Indication: EPILEPSY
     Dosage: 10 MG, 1 IN 1 D
     Route: 048
  2. VALPROIC ACID [Suspect]
     Indication: ASTHMA
     Dosage: 200 MG, 1 IN 1 D
     Route: 048
  3. PHENYTOIN [Suspect]
     Dosage: 300 MG, 1 IN 1 D
     Route: 048

REACTIONS (3)
  - Epilepsy [Unknown]
  - Drug interaction [Unknown]
  - Asthma [Unknown]
